FAERS Safety Report 5126954-6 (Version None)
Quarter: 2006Q4

REPORT INFORMATION
  Report Type: 
  Country: None (occurrence: None)
  Receive Date: 20061013
  Receipt Date: 20060829
  Transmission Date: 20070319
  Serious: Yes (Hospitalization)
  Sender: FDA-Public Use
  Company Number: IE-AMGEN-UK191859

PATIENT
  Sex: Female
  Weight: 132.6 kg

DRUGS (7)
  1. NEULASTA [Suspect]
     Indication: CHEMOTHERAPY
     Route: 058
     Dates: start: 20060725
  2. DICLOFENAC SODIUM [Suspect]
     Route: 065
  3. DOXORUBICIN HYDROCHLORIDE [Concomitant]
     Route: 065
  4. CYCLOPHOSPHAMIDE [Concomitant]
     Route: 065
  5. PACLITAXEL [Concomitant]
     Route: 065
  6. GEMCITABINE [Concomitant]
     Route: 065
  7. CARDURA [Concomitant]
     Route: 065

REACTIONS (17)
  - BACK PAIN [None]
  - BLISTER [None]
  - BODY MASS INDEX INCREASED [None]
  - CATHETER SITE DISCHARGE [None]
  - CATHETER SITE ERYTHEMA [None]
  - CELLULITIS [None]
  - CHEST PAIN [None]
  - HAEMOGLOBIN DECREASED [None]
  - HEADACHE [None]
  - MOBILITY DECREASED [None]
  - MUSCULOSKELETAL CHEST PAIN [None]
  - MUSCULOSKELETAL PAIN [None]
  - NECK PAIN [None]
  - NEUTROPENIC SEPSIS [None]
  - OEDEMA PERIPHERAL [None]
  - RENAL IMPAIRMENT [None]
  - STAPHYLOCOCCAL INFECTION [None]
